FAERS Safety Report 9393918 (Version 1)
Quarter: 2013Q3

REPORT INFORMATION
  Report Type: Spontaneous
  Country: US (occurrence: US)
  Receive Date: 20130710
  Receipt Date: 20130710
  Transmission Date: 20140515
  Serious: No
  Sender: FDA-Public Use
  Company Number: US-009507513-1204USA00534

PATIENT
  Sex: Male

DRUGS (4)
  1. PROPECIA [Suspect]
     Indication: ALOPECIA
     Dosage: 1 MG, QD
     Route: 048
     Dates: start: 20120219
  2. PROPECIA [Suspect]
     Dosage: UNK MG, UNK
     Route: 048
  3. PROPECIA [Suspect]
     Dosage: UNK MG, UNK
     Route: 048
     Dates: end: 201104
  4. PROPECIA [Suspect]
     Dosage: 1 UNK, UNK
     Route: 048
     Dates: start: 20120202

REACTIONS (3)
  - Alopecia [Not Recovered/Not Resolved]
  - Libido decreased [Unknown]
  - Alopecia [Unknown]
